FAERS Safety Report 26009764 (Version 1)
Quarter: 2025Q4

REPORT INFORMATION
  Report Type: Spontaneous
  Country: US (occurrence: US)
  Receive Date: 20251107
  Receipt Date: 20251107
  Transmission Date: 20260118
  Serious: No
  Sender: BRISTOL-MYERS SQUIBB COMPANY
  Company Number: US-BRISTOL-MYERS SQUIBB COMPANY-2025-151304

PATIENT
  Age: 33 Year
  Sex: Female

DRUGS (3)
  1. COBENFY [Suspect]
     Active Substance: TROSPIUM CHLORIDE\XANOMELINE
     Indication: Schizophrenia
     Dosage: 50-20 MGSTRENGTH: 50-20 MILLIGRAM
     Route: 048
     Dates: start: 20250201, end: 20250207
  2. COBENFY [Suspect]
     Active Substance: TROSPIUM CHLORIDE\XANOMELINE
     Dosage: 50-20 MGSTRENGTH: 50-20 MILLIGRAM
     Route: 048
     Dates: start: 20250208, end: 20250619
  3. COBENFY [Suspect]
     Active Substance: TROSPIUM CHLORIDE\XANOMELINE
     Dosage: 100-20 MGSTRENGTH: 100-20 MILLIGRAM
     Route: 048
     Dates: start: 20250620, end: 20251005

REACTIONS (2)
  - Constipation [Recovered/Resolved]
  - Haemorrhoids [Not Recovered/Not Resolved]

NARRATIVE: CASE EVENT DATE: 20250228
